FAERS Safety Report 25925178 (Version 1)
Quarter: 2025Q4

REPORT INFORMATION
  Report Type: Spontaneous
  Country: EU (occurrence: EU)
  Receive Date: 20251015
  Receipt Date: 20251015
  Transmission Date: 20260117
  Serious: Yes (Hospitalization)
  Sender: FRESENIUS KABI
  Company Number: None

PATIENT
  Age: 66 Year
  Sex: Female
  Weight: 54.4 kg

DRUGS (5)
  1. PACLITAXEL [Suspect]
     Active Substance: PACLITAXEL
     Indication: Metastases to central nervous system
     Dosage: ONCE, 100 ML/HOUR ADMINISTERED FOR 180 MIN.
     Dates: start: 20250801, end: 20250923
  2. PACLITAXEL [Suspect]
     Active Substance: PACLITAXEL
     Indication: Large cell lung cancer
  3. ATEZOLIZUMAB solution for infusion CONC 60MG/ML/ Brand name not specif [Concomitant]
     Indication: Product used for unknown indication
     Dosage: SOLUTION FOR INFUSION, 60 MG/ML (MILLIGRAM PER MILLILITER) ?FOA: CONCENTRATE FOR SOLUTION FOR INFUSI
  4. BEVACIZUMAB solution for infusion CONC 25MG/ML / Brand name not specif [Concomitant]
     Indication: Product used for unknown indication
     Dosage: SOLUTION FOR INFUSION, 25 MG/ML (MILLIGRAM PER MILLILITER) ?FOA: CONCENTRATE FOR SOLUTION FOR INFUSI
  5. CARBOPLATIN INFOPL CONC 10MG/ML / Brand name not specified [Concomitant]
     Indication: Product used for unknown indication
     Dosage: SOLUTION FOR INFUSION, 10 MG/ML (MILLIGRAM PER MILLILITER)?FOA: CONCENTRATE FOR SOLUTION FOR INFUSIO

REACTIONS (3)
  - Polyneuropathy [Recovering/Resolving]
  - Asthenia [Recovering/Resolving]
  - Gait disturbance [Recovering/Resolving]
